FAERS Safety Report 5708044-4 (Version None)
Quarter: 2008Q2

REPORT INFORMATION
  Report Type: 
  Country: None (occurrence: None)
  Receive Date: 20080417
  Receipt Date: 20080404
  Transmission Date: 20081010
  Serious: Yes (Other)
  Sender: FDA-Public Use
  Company Number: US-AMGEN-KDL270029

PATIENT
  Sex: Female
  Weight: 101.2 kg

DRUGS (9)
  1. ENBREL [Suspect]
     Indication: RHEUMATOID ARTHRITIS
     Route: 058
     Dates: start: 20050519, end: 20080306
  2. METHOTREXATE [Suspect]
     Indication: DRUG USE FOR UNKNOWN INDICATION
  3. LEUCOVORIN [Concomitant]
  4. SYNTHROID [Concomitant]
  5. ZIAC [Concomitant]
  6. TYLENOL (CAPLET) [Concomitant]
  7. ANEXSIA [Concomitant]
  8. TYLENOL W/ CODEINE NO. 3 [Concomitant]
  9. CELEBREX [Concomitant]

REACTIONS (4)
  - BETA HAEMOLYTIC STREPTOCOCCAL INFECTION [None]
  - HEPATIC ENZYME INCREASED [None]
  - INFECTIOUS MONONUCLEOSIS [None]
  - STOMATITIS [None]
